FAERS Safety Report 6709366-0 (Version None)
Quarter: 2010Q2

REPORT INFORMATION
  Report Type: 
  Country: None (occurrence: None)
  Receive Date: 20100504
  Receipt Date: 20100421
  Transmission Date: 20101027
  Serious: Yes (Hospitalization)
  Sender: FDA-Public Use
  Company Number: PHHY2010FR25016

PATIENT
  Age: 82 Year
  Sex: Female

DRUGS (9)
  1. TAREG [Interacting]
     Dosage: 80 MG
     Route: 048
  2. CORVASAL [Interacting]
  3. LASIX [Suspect]
  4. IXPRIM [Interacting]
  5. SEROPLEX [Suspect]
  6. TAHOR [Concomitant]
     Dosage: 10 MG
  7. DIFFU K [Concomitant]
  8. LEVOTHYROX [Concomitant]
  9. MOPRAL [Concomitant]

REACTIONS (4)
  - DRUG INTERACTION [None]
  - LOSS OF CONSCIOUSNESS [None]
  - MALAISE [None]
  - ORTHOSTATIC HYPOTENSION [None]
